FAERS Safety Report 8731779 (Version 2)
Quarter: 2012Q4

REPORT INFORMATION
  Report Type: 
  Country: US (occurrence: US)
  Receive Date: 20120820
  Receipt Date: 20121002
  Transmission Date: 20130627
  Serious: No
  Sender: FDA-Public Use
  Company Number: US-PFIZER INC-2012198926

PATIENT
  Age: 62 Year
  Sex: Female

DRUGS (9)
  1. SUTENT [Suspect]
     Indication: METASTATIC RENAL CELL CARCINOMA
     Dosage: 37.5 mg
     Route: 048
     Dates: start: 20120510
  2. SUTENT [Suspect]
     Indication: METASTASES TO BREAST
  3. SUTENT [Suspect]
     Indication: RENAL CANCER
  4. B12 SL [Concomitant]
     Dosage: UNK,1x/day
     Route: 060
  5. FOLIC ACID [Concomitant]
     Dosage: UNK,1x/day
  6. LISINOPRIL [Concomitant]
     Dosage: UNK,1x/day
  7. ATENOLOL [Concomitant]
     Dosage: UNK,1x/day
  8. CYMBALTA [Concomitant]
     Dosage: UNK,1x/day
  9. PRILOSEC [Concomitant]
     Dosage: UNK,1x/day

REACTIONS (2)
  - Face oedema [Recovered/Resolved]
  - Localised oedema [Unknown]
